FAERS Safety Report 4317442-5 (Version None)
Quarter: 2004Q1

REPORT INFORMATION
  Report Type: 
  Country: None (occurrence: None)
  Receive Date: 20040312
  Receipt Date: 20040303
  Transmission Date: 20041129
  Serious: Yes (Hospitalization)
  Sender: FDA-Public Use
  Company Number: 2004014819

PATIENT
  Age: 56 Year
  Sex: Female
  Weight: 111 kg

DRUGS (3)
  1. SUDAFED 12 HOUR [Suspect]
     Dosage: ORAL
     Route: 048
     Dates: start: 20040203
  2. BLINDED THERAPY [Suspect]
     Indication: GASTROINTESTINAL STROMAL TUMOUR
     Dosage: ORAL
     Route: 048
     Dates: start: 20030625
  3. ACETYLSALICYLIC ACID SRT [Suspect]
     Dosage: ORAL
     Route: 048
     Dates: start: 20040203

REACTIONS (3)
  - ASTHMA [None]
  - HYPERSENSITIVITY [None]
  - HYPOXIA [None]
